FAERS Safety Report 5676180-7 (Version None)
Quarter: 2008Q1

REPORT INFORMATION
  Report Type: 
  Country: None (occurrence: None)
  Receive Date: 20080321
  Receipt Date: 20080314
  Transmission Date: 20080703
  Serious: No
  Sender: FDA-Public Use
  Company Number: US-BAXTER-2008BH002331

PATIENT
  Sex: Female

DRUGS (1)
  1. HEPARIN SODIUM [Suspect]
     Indication: BLADDER DISORDER
     Dosage: DOSE UNIT:UNKNOWN
     Route: 043
     Dates: end: 20080301

REACTIONS (4)
  - BURNING SENSATION [None]
  - INFLAMMATION [None]
  - INSTILLATION SITE IRRITATION [None]
  - PAIN [None]
